FAERS Safety Report 24088332 (Version 8)
Quarter: 2025Q2

REPORT INFORMATION
  Report Type: Spontaneous
  Country: US (occurrence: US)
  Receive Date: 20240715
  Receipt Date: 20250614
  Transmission Date: 20250716
  Serious: Yes (Hospitalization, Other)
  Sender: TRAVERE THERAPEUTICS
  Company Number: US-TRAVERE-2024TVT00563

PATIENT
  Age: 81 Year
  Sex: Male

DRUGS (5)
  1. FILSPARI [Suspect]
     Active Substance: SPARSENTAN
     Indication: IgA nephropathy
     Dosage: EXPIRY DATE: 29-MAY-2025/ 31-MAR-2026
     Route: 048
     Dates: start: 20240530, end: 20250128
  2. TERAZOSIN [Suspect]
     Active Substance: TERAZOSIN HYDROCHLORIDE
     Indication: Product used for unknown indication
  3. FUROSEMIDE [Suspect]
     Active Substance: FUROSEMIDE
     Indication: Product used for unknown indication
  4. LOSARTAN [Suspect]
     Active Substance: LOSARTAN
     Indication: Product used for unknown indication
  5. DILTIAZEM [Concomitant]
     Active Substance: DILTIAZEM

REACTIONS (12)
  - Glomerular filtration rate decreased [Unknown]
  - Internal haemorrhage [Unknown]
  - Muscle strength abnormal [Unknown]
  - Renal surgery [Unknown]
  - Prostatic operation [Unknown]
  - Haemoglobin decreased [Unknown]
  - Asthenia [Unknown]
  - Blood pressure decreased [Recovered/Resolved]
  - Malaise [Unknown]
  - Off label use [Unknown]
  - Blood potassium increased [Unknown]
  - Chronic kidney disease [Unknown]

NARRATIVE: CASE EVENT DATE: 20240601
